FAERS Safety Report 6361150-6 (Version None)
Quarter: 2009Q3

REPORT INFORMATION
  Report Type: 
  Country: None (occurrence: None)
  Receive Date: 20090916
  Receipt Date: 20090916
  Transmission Date: 20100115
  Serious: Yes (Life-Threatening, Hospitalization)
  Sender: FDA-Public Use
  Company Number: None

PATIENT
  Sex: Male
  Weight: 90.7194 kg

DRUGS (2)
  1. INVANZ [Suspect]
     Indication: ANTIBIOTIC THERAPY
     Dosage: 1 GRAM 2 DAY
     Dates: start: 20090722, end: 20090803
  2. INVANZ [Suspect]
     Indication: FOOT OPERATION
     Dosage: 1 GRAM 2 DAY
     Dates: start: 20090722, end: 20090803

REACTIONS (5)
  - AGITATION [None]
  - CONVULSION [None]
  - DISORIENTATION [None]
  - MEMORY IMPAIRMENT [None]
  - MENTAL STATUS CHANGES [None]
